FAERS Safety Report 19206309 (Version 1)
Quarter: 2021Q2

REPORT INFORMATION
  Report Type: Spontaneous
  Country: DE (occurrence: DE)
  Receive Date: 20210503
  Receipt Date: 20210503
  Transmission Date: 20210717
  Serious: Yes (Life-Threatening, Hospitalization)
  Sender: FDA-Public Use
  Company Number: DE-ACCORD-223647

PATIENT
  Age: 83 Year
  Sex: Female
  Weight: 56 kg

DRUGS (6)
  1. BRIMONIDINE/TIMOLOL [Concomitant]
     Active Substance: BRIMONIDINE TARTRATE\TIMOLOL MALEATE
     Dosage: 0.3/ 5 MG/ML, 0?0?1?0
  2. SALBUTAMOL [Concomitant]
     Active Substance: ALBUTEROL
     Dosage: IF NECESSARY
  3. OMEPRAZOLE. [Concomitant]
     Active Substance: OMEPRAZOLE
     Dosage: 40 MG, 1?0?0?0
  4. ANAGRELIDE/ANAGRELIDE HYDROCHLORIDE [Concomitant]
     Active Substance: ANAGRELIDE HYDROCHLORIDE
     Dosage: 1 MG, 1?0?0?0
  5. BRIMONIDINE [Concomitant]
     Active Substance: BRIMONIDINE TARTRATE
     Dosage: 2 MG/ML, 1?0?1?0
  6. RAMIPRIL. [Suspect]
     Active Substance: RAMIPRIL
     Indication: PRODUCT USED FOR UNKNOWN INDICATION
     Dosage: 5 MG, 1?0?0?0

REACTIONS (5)
  - Pyrexia [Unknown]
  - Localised infection [Unknown]
  - General physical health deterioration [Unknown]
  - Dehydration [Unknown]
  - Fall [Unknown]
